FAERS Safety Report 5612627-X (Version None)
Quarter: 2008Q1

REPORT INFORMATION
  Report Type: 
  Country: None (occurrence: None)
  Receive Date: 20080204
  Receipt Date: 20080122
  Transmission Date: 20080703
  Serious: Yes (Hospitalization)
  Sender: FDA-Public Use
  Company Number: B0506186A

PATIENT
  Age: 70 Year
  Sex: Male

DRUGS (5)
  1. RANIPLEX [Suspect]
     Indication: PREMEDICATION
     Dosage: 50MG PER DAY
     Route: 042
     Dates: start: 20071214, end: 20071214
  2. SOLU-MEDROL [Suspect]
     Indication: PREMEDICATION
     Dosage: 120MG PER DAY
     Route: 042
     Dates: start: 20071214, end: 20071214
  3. TAXOTERE [Suspect]
     Dosage: 30MG PER DAY
     Route: 042
     Dates: start: 20071214, end: 20071214
  4. KYTRIL [Suspect]
     Indication: PREMEDICATION
     Dosage: 3MG PER DAY
     Route: 042
     Dates: start: 20071214, end: 20071214
  5. POLARAMINE [Suspect]
     Indication: PREMEDICATION
     Dosage: 5MG PER DAY
     Route: 042
     Dates: start: 20071214, end: 20071214

REACTIONS (6)
  - CHEST DISCOMFORT [None]
  - CHEST PAIN [None]
  - DYSPNOEA [None]
  - MYOCARDIAL INFARCTION [None]
  - TACHYCARDIA [None]
  - TROPONIN INCREASED [None]
